FAERS Safety Report 13382102 (Version 3)
Quarter: 2017Q2

REPORT INFORMATION
  Report Type: Report from Study
  Country: JP (occurrence: JP)
  Receive Date: 20170329
  Receipt Date: 20170606
  Transmission Date: 20170830
  Serious: Yes (Hospitalization)
  Sender: FDA-Public Use
  Company Number: PHJP2017JP009874

PATIENT

DRUGS (1)
  1. SIGNIFOR LAR [Suspect]
     Active Substance: PASIREOTIDE
     Indication: ACROMEGALY
     Dosage: 40 MG, QD
     Route: 030
     Dates: start: 20170310

REACTIONS (4)
  - Hypoglycaemia [Unknown]
  - Hepatic function abnormal [Unknown]
  - Hyperglycaemia [Unknown]
  - Constipation [Unknown]

NARRATIVE: CASE EVENT DATE: 20170313
